FAERS Safety Report 11593373 (Version 2)
Quarter: 2015Q4

REPORT INFORMATION
  Report Type: Report from Study
  Country: NO (occurrence: NO)
  Receive Date: 20151005
  Receipt Date: 20151020
  Transmission Date: 20160304
  Serious: Yes (Other)
  Sender: FDA-Public Use
  Company Number: NO-BAYER-2015-420789

PATIENT
  Age: 47 Year
  Sex: Female
  Weight: 55 kg

DRUGS (3)
  1. SEPTOCAINE [Concomitant]
     Active Substance: ARTICAINE HYDROCHLORIDE\EPINEPHRINE BITARTRATE
  2. MIRENA [Suspect]
     Active Substance: LEVONORGESTREL
     Indication: CONTRACEPTION
     Dosage: 20 MCG/24HR, CONT
     Route: 015
     Dates: start: 20150908, end: 20150908
  3. ADRENALINE [Concomitant]
     Active Substance: EPINEPHRINE

REACTIONS (6)
  - Uterine perforation [Recovered/Resolved]
  - Device dislocation [None]
  - Migraine [None]
  - Cervix carcinoma [None]
  - Intentional device misuse [Recovered/Resolved]
  - Device difficult to use [None]

NARRATIVE: CASE EVENT DATE: 2008
